FAERS Safety Report 11572282 (Version 1)
Quarter: 2015Q3

REPORT INFORMATION
  Report Type: Spontaneous
  Country: IN (occurrence: IN)
  Receive Date: 20150929
  Receipt Date: 20150929
  Transmission Date: 20151125
  Serious: Yes (Other)
  Sender: FDA-Public Use
  Company Number: IN-HQ SPECIALTY-IN-2015INT000552

PATIENT
  Age: 58 Year
  Sex: Female

DRUGS (2)
  1. CISPLATIN. [Suspect]
     Active Substance: CISPLATIN
     Indication: OVARIAN EPITHELIAL CANCER
     Dosage: UNK
     Route: 065
  2. DOXORUBICIN [Suspect]
     Active Substance: DOXORUBICIN
     Indication: OVARIAN EPITHELIAL CANCER
     Dosage: UNK
     Route: 065

REACTIONS (7)
  - Tenderness [Recovering/Resolving]
  - Skin reaction [Recovering/Resolving]
  - Type I hypersensitivity [Recovering/Resolving]
  - Skin plaque [Recovering/Resolving]
  - Sensory disturbance [Recovering/Resolving]
  - Pyrexia [Recovering/Resolving]
  - Nervous system disorder [Recovering/Resolving]
